FAERS Safety Report 7519241-X (Version None)
Quarter: 2011Q2

REPORT INFORMATION
  Report Type: 
  Country: None (occurrence: None)
  Receive Date: 20110602
  Receipt Date: 20110525
  Transmission Date: 20111010
  Serious: Yes (Hospitalization)
  Sender: FDA-Public Use
  Company Number: FR-TEVA-284182ISR

PATIENT
  Age: 60 Year
  Sex: Male

DRUGS (4)
  1. CISPLATIN [Suspect]
     Indication: BLADDER CANCER
     Route: 042
     Dates: start: 20081201, end: 20090301
  2. LEVOTHYROXINE SODIUM [Concomitant]
     Indication: HYPOTHYROIDISM
  3. AMLODIPINE BESYLATE [Concomitant]
     Indication: HYPERTENSION
     Dates: start: 20050101
  4. GEMCITABINE [Suspect]
     Indication: BLADDER CANCER
     Route: 042
     Dates: start: 20081201, end: 20090301

REACTIONS (1)
  - SARCOIDOSIS [None]
